FAERS Safety Report 10167169 (Version 1)
Quarter: 2014Q2

REPORT INFORMATION
  Report Type: Spontaneous
  Country: US (occurrence: None)
  Receive Date: 20140509
  Receipt Date: 20140509
  Transmission Date: 20141212
  Serious: No
  Sender: FDA-Public Use
  Company Number: None

PATIENT
  Age: 61 Year
  Sex: Female
  Weight: 72.12 kg

DRUGS (1)
  1. DORZOLAMIDE [Suspect]
     Indication: GLAUCOMA

REACTIONS (2)
  - Insomnia [None]
  - Feeling abnormal [None]
